FAERS Safety Report 7769995-2 (Version None)
Quarter: 2011Q3

REPORT INFORMATION
  Report Type: 
  Country: None (occurrence: None)
  Receive Date: 20110922
  Receipt Date: 20100802
  Transmission Date: 20111222
  Serious: No
  Sender: FDA-Public Use
  Company Number: US-ASTRAZENECA-2007UW06138

PATIENT
  Age: 49 Year
  Sex: Female
  Weight: 76.2 kg

DRUGS (19)
  1. SEROQUEL [Suspect]
     Indication: BIPOLAR DISORDER
     Dosage: 25 - 250 MG, FLUCTUATING
     Route: 048
     Dates: start: 20010611, end: 20030715
  2. ZYPREXA [Concomitant]
     Dates: start: 20010907, end: 20020315
  3. PAXIL [Concomitant]
     Dates: start: 20020301, end: 20030725
  4. ABILIFY [Concomitant]
     Dates: start: 20040610, end: 20060530
  5. REMERON [Concomitant]
     Dosage: 7.5 - 15 MG
     Dates: start: 20010427
  6. SEROQUEL [Suspect]
     Dosage: 25 MG - 200MG
     Route: 048
     Dates: start: 20020119, end: 20030307
  7. ABILIFY [Concomitant]
     Dates: start: 20050101, end: 20070101
  8. GEODON [Concomitant]
     Dates: start: 20020323, end: 20030307
  9. LEVAQUIN [Concomitant]
     Dates: start: 20030216
  10. ZYPREXA [Concomitant]
     Indication: BIPOLAR DISORDER
     Dates: start: 20020129, end: 20020302
  11. PREDNISONE [Concomitant]
     Dates: start: 20030216
  12. SEROQUEL [Suspect]
     Indication: PSYCHOTIC DISORDER
     Dosage: 25 - 250 MG, FLUCTUATING
     Route: 048
     Dates: start: 20010611, end: 20030715
  13. SYNTHROID [Concomitant]
     Dates: start: 20020415
  14. ADVAIR DISKU 250 - 50 [Concomitant]
     Dates: start: 20030216
  15. SEROQUEL [Suspect]
     Dosage: 25 MG - 200MG
     Route: 048
     Dates: start: 20020119, end: 20030307
  16. SEROQUEL [Suspect]
     Dosage: 25 MG - 200MG
     Route: 048
     Dates: start: 20020119, end: 20030307
  17. THORAZINE [Concomitant]
  18. LEVOXYL [Concomitant]
     Dosage: 100 MCG
     Dates: start: 20020129
  19. SEROQUEL [Suspect]
     Indication: SLEEP DISORDER
     Dosage: 25 - 250 MG, FLUCTUATING
     Route: 048
     Dates: start: 20010611, end: 20030715

REACTIONS (4)
  - TYPE 2 DIABETES MELLITUS [None]
  - OBESITY [None]
  - DIABETES MELLITUS [None]
  - MALAISE [None]
